FAERS Safety Report 19214011 (Version 4)
Quarter: 2021Q4

REPORT INFORMATION
  Report Type: Report from Study
  Country: US (occurrence: US)
  Receive Date: 20210504
  Receipt Date: 20211118
  Transmission Date: 20220303
  Serious: Yes (Life-Threatening, Other)
  Sender: FDA-Public Use
  Company Number: US-GILEAD-2021-0522402

PATIENT
  Age: 37 Year
  Sex: Male

DRUGS (50)
  1. REMDESIVIR [Suspect]
     Active Substance: REMDESIVIR
     Indication: COVID-19
     Dosage: UNK, QD
     Route: 042
     Dates: start: 20210201, end: 20210204
  2. CENICRIVIROC [Suspect]
     Active Substance: CENICRIVIROC
     Indication: COVID-19
     Dosage: UNK UNK, BID
     Route: 048
     Dates: start: 20210131, end: 20210301
  3. PLACEBO [Suspect]
     Active Substance: UNSPECIFIED INGREDIENT
     Indication: COVID-19
     Dosage: UNK UNK, BID
     Route: 048
     Dates: start: 20210131, end: 20210301
  4. DEXAMETHASONE [Concomitant]
     Active Substance: DEXAMETHASONE
  5. EPINEPHRINE [Concomitant]
     Active Substance: EPINEPHRINE
  6. FENTANYL CITRATE [Concomitant]
     Active Substance: FENTANYL CITRATE
  7. GLUCAGON [Concomitant]
     Active Substance: GLUCAGON
  8. HYDROMORPHONE HYDROCHLORIDE [Concomitant]
     Active Substance: HYDROMORPHONE HYDROCHLORIDE
  9. NOREPINEPHRINE BITARTRATE [Concomitant]
     Active Substance: NOREPINEPHRINE BITARTRATE
  10. PROPOFOL [Concomitant]
     Active Substance: PROPOFOL
  11. VANCOMYCIN [Concomitant]
     Active Substance: VANCOMYCIN
  12. AMLODIPINE BESYLATE [Concomitant]
     Active Substance: AMLODIPINE BESYLATE
  13. BISACODYL [Concomitant]
     Active Substance: BISACODYL
  14. CAPTOPRIL [Concomitant]
     Active Substance: CAPTOPRIL
  15. CISATRACURIUM [Concomitant]
     Active Substance: CISATRACURIUM
  16. DOCUSATE SODIUM\SENNOSIDES A AND B [Concomitant]
     Active Substance: DOCUSATE SODIUM\SENNOSIDES A AND B
  17. ENOXAPARIN [Concomitant]
     Active Substance: ENOXAPARIN
  18. FAMOTIDINE [Concomitant]
     Active Substance: FAMOTIDINE
  19. FUROSEMIDE [Concomitant]
     Active Substance: FUROSEMIDE
  20. GUAIFENESIN [Concomitant]
     Active Substance: GUAIFENESIN
  21. HYDRALAZINE [Concomitant]
     Active Substance: HYDRALAZINE HYDROCHLORIDE
  22. LABETALOL HYDROCHLORIDE [Concomitant]
     Active Substance: LABETALOL HYDROCHLORIDE
  23. LISINOPRIL [Concomitant]
     Active Substance: LISINOPRIL
  24. LORAZEPAM [Concomitant]
     Active Substance: LORAZEPAM
  25. POLYETHYLENE GLYCOL 3350 [Concomitant]
     Active Substance: POLYETHYLENE GLYCOL 3350
  26. MAGNESIUM [Concomitant]
     Active Substance: MAGNESIUM
  27. MELATONIN [Concomitant]
     Active Substance: MELATONIN
  28. METOCLOPRAMIDE [Concomitant]
     Active Substance: METOCLOPRAMIDE
  29. OXYCODONE [Concomitant]
     Active Substance: OXYCODONE
  30. ACETAMINOPHEN [Concomitant]
     Active Substance: ACETAMINOPHEN
  31. POTASSIUM [Concomitant]
     Active Substance: POTASSIUM
  32. QUETIAPINE [Concomitant]
     Active Substance: QUETIAPINE
  33. TRAZODONE [Concomitant]
     Active Substance: TRAZODONE HYDROCHLORIDE
  34. AZITHROMYCIN [Concomitant]
     Active Substance: AZITHROMYCIN
  35. CEFEPIME [Concomitant]
     Active Substance: CEFEPIME HYDROCHLORIDE
  36. PIPERACILLIN SODIUM\TAZOBACTAM SODIUM [Concomitant]
     Active Substance: PIPERACILLIN SODIUM\TAZOBACTAM SODIUM
  37. ACETAZOLAMIDE [Concomitant]
     Active Substance: ACETAZOLAMIDE
  38. BIVALIRUDIN [Concomitant]
     Active Substance: BIVALIRUDIN
  39. CARVEDILOL [Concomitant]
     Active Substance: CARVEDILOL
  40. DEXMEDETOMIDINE [Concomitant]
     Active Substance: DEXMEDETOMIDINE
  41. HALOPERIDOL DECANOATE [Concomitant]
     Active Substance: HALOPERIDOL DECANOATE
  42. HEPARIN [Concomitant]
     Active Substance: HEPARIN SODIUM
  43. HYDROXYZINE PAMOATE [Concomitant]
     Active Substance: HYDROXYZINE PAMOATE
  44. INSULIN NOS [Concomitant]
     Active Substance: INSULIN NOS
  45. LACTULOSE [Concomitant]
     Active Substance: LACTULOSE
  46. METHOCARBAMOL [Concomitant]
     Active Substance: METHOCARBAMOL
  47. NICARDIPINE [Concomitant]
     Active Substance: NICARDIPINE
  48. OLANZAPINE [Concomitant]
     Active Substance: OLANZAPINE
  49. ONDANSETRON [Concomitant]
     Active Substance: ONDANSETRON
  50. UREA HYDROGEN PEROXIDE [Concomitant]

REACTIONS (1)
  - Pneumonia bacterial [Recovered/Resolved]

NARRATIVE: CASE EVENT DATE: 20210214
